FAERS Safety Report 17184333 (Version 1)
Quarter: 2019Q4

REPORT INFORMATION
  Report Type: Spontaneous
  Country: IT (occurrence: IT)
  Receive Date: 20191220
  Receipt Date: 20191220
  Transmission Date: 20200122
  Serious: Yes (Hospitalization)
  Sender: FDA-Public Use
  Company Number: IT-MYLANLABS-2019M1125360

PATIENT
  Age: 46 Year
  Sex: Female

DRUGS (2)
  1. ONTRUZANT [Concomitant]
     Active Substance: TRASTUZUMAB-DTTB
  2. PACLITAXEL MYLAN GENERICS 6 MG/ML [Suspect]
     Active Substance: PACLITAXEL
     Indication: BREAST CANCER
     Dosage: 80 MILLIGRAM/SQ. METER, TOTAL
     Route: 042
     Dates: start: 20190819, end: 20190819

REACTIONS (4)
  - Troponin increased [Recovering/Resolving]
  - Infusion site pain [Recovering/Resolving]
  - Chest pain [Recovering/Resolving]
  - Cough [Recovering/Resolving]

NARRATIVE: CASE EVENT DATE: 20190819
